FAERS Safety Report 9103500 (Version 1)
Quarter: 2013Q1

REPORT INFORMATION
  Report Type: Spontaneous
  Country: AR (occurrence: AR)
  Receive Date: 20130218
  Receipt Date: 20130218
  Transmission Date: 20140127
  Serious: Yes (Death, Hospitalization)
  Sender: FDA-Public Use
  Company Number: PHHY2012AR127459

PATIENT
  Age: 72 Year
  Sex: Male

DRUGS (2)
  1. GALVUS MET [Suspect]
     Dosage: 1 DF (1000 MG MET AND 50 MG VILDA), UNK
     Route: 048
  2. EXFORGE [Suspect]
     Dosage: 1 DF (160 MG VALS AND 5 MG AMLO), UNK
     Route: 048

REACTIONS (2)
  - Cardio-respiratory arrest [Fatal]
  - Neoplasm [Fatal]
